FAERS Safety Report 16900562 (Version 1)
Quarter: 2019Q4

REPORT INFORMATION
  Report Type: Report from Study
  Country: US (occurrence: US)
  Receive Date: 20191009
  Receipt Date: 20191009
  Transmission Date: 20200122
  Serious: Yes (Hospitalization)
  Sender: FDA-Public Use
  Company Number: US-GILEAD-2019-0432337

PATIENT
  Age: 60 Year
  Sex: Male

DRUGS (19)
  1. ADVAIR HFA [Concomitant]
     Active Substance: FLUTICASONE PROPIONATE\SALMETEROL XINAFOATE
  2. VITAMINS NOS [Concomitant]
     Active Substance: VITAMINS
  3. ZOLPIDEM TARTRATE. [Concomitant]
     Active Substance: ZOLPIDEM TARTRATE
  4. LORAZEPAM. [Concomitant]
     Active Substance: LORAZEPAM
  5. MONTELUKAST SODIUM. [Concomitant]
     Active Substance: MONTELUKAST SODIUM
  6. OMEPRAZOLE. [Concomitant]
     Active Substance: OMEPRAZOLE
  7. BUDESONIDE. [Concomitant]
     Active Substance: BUDESONIDE
  8. CALCIUM CITRATE VITAMIN D3 [Concomitant]
  9. COMBIVENT [Concomitant]
     Active Substance: ALBUTEROL SULFATE\IPRATROPIUM BROMIDE
  10. CREON [Concomitant]
     Active Substance: PANCRELIPASE AMYLASE\PANCRELIPASE LIPASE\PANCRELIPASE PROTEASE
  11. LISINOPRIL. [Concomitant]
     Active Substance: LISINOPRIL
  12. ARGININE [Concomitant]
     Active Substance: ARGININE
  13. AZITHROMYCIN ANHYDROUS. [Concomitant]
     Active Substance: AZITHROMYCIN ANHYDROUS
  14. AZTREONAM LYSINE [Suspect]
     Active Substance: AZTREONAM LYSINE
     Indication: PSEUDOMONAS INFECTION
  15. PULMOZYME [Concomitant]
     Active Substance: DORNASE ALFA
  16. VITAMIN D NOS [Concomitant]
     Active Substance: VITAMIN D NOS
  17. AZTREONAM LYSINE [Suspect]
     Active Substance: AZTREONAM LYSINE
     Indication: CYSTIC FIBROSIS
     Dosage: 75 MG, TID, QOM
     Route: 055
     Dates: start: 201108
  18. AMLODIPINE BESILATE [Concomitant]
     Active Substance: AMLODIPINE BESYLATE
  19. PROLIA [Concomitant]
     Active Substance: DENOSUMAB

REACTIONS (1)
  - Influenza [Unknown]
